FAERS Safety Report 12539150 (Version 1)
Quarter: 2016Q3

REPORT INFORMATION
  Report Type: Spontaneous
  Country: US (occurrence: US)
  Receive Date: 20160708
  Receipt Date: 20160708
  Transmission Date: 20161109
  Serious: Yes (Hospitalization)
  Sender: FDA-Public Use
  Company Number: US-ACCORD-042195

PATIENT
  Age: 62 Year
  Sex: Male

DRUGS (10)
  1. TACROLIMUS. [Suspect]
     Active Substance: TACROLIMUS
     Indication: RENAL TRANSPLANT
     Dosage: TARGET 12HR TROUGH OF 10-12 NG/ML.?DOSING REDUCED TO TARGET TROUGH OF 4-6 NG/ML, THEN WEANED OFF.
  2. FUROSEMIDE. [Concomitant]
     Active Substance: FUROSEMIDE
  3. EMTRICITABINE [Concomitant]
     Active Substance: EMTRICITABINE
     Indication: ANTIRETROVIRAL THERAPY
  4. PREDNISONE. [Suspect]
     Active Substance: PREDNISONE
     Indication: RENAL TRANSPLANT
     Dosage: WITH A PLAN TO TAPER TO 5MG OVER 3 MONTHS
  5. SULFAMETHOXAZOLE/TRIMETHOPRIM [Concomitant]
     Indication: PROPHYLAXIS
  6. VALGANCICLOVIR/VALGANCICLOVIR HYDROCHLORIDE [Concomitant]
     Indication: PROPHYLAXIS
  7. RALTEGRAVIR. [Concomitant]
     Active Substance: RALTEGRAVIR
     Indication: ANTIRETROVIRAL THERAPY
  8. MYCOPHENOLIC ACID. [Suspect]
     Active Substance: MYCOPHENOLIC ACID
     Indication: RENAL TRANSPLANT
     Dosage: RECEIVED AS MAINTENANCE THERAPY.
  9. TENOFOVIR/TENOFOVIR DISOPROXIL FUMARATE [Concomitant]
     Indication: ANTIRETROVIRAL THERAPY
  10. BASILIXIMAB [Concomitant]
     Active Substance: BASILIXIMAB
     Indication: RENAL TRANSPLANT
     Dosage: RECEIVED AS INDUCTION THERAPY

REACTIONS (5)
  - Hypotension [Recovered/Resolved]
  - Renal tubular necrosis [Recovering/Resolving]
  - Kidney fibrosis [Unknown]
  - Giardiasis [Unknown]
  - Gastroenteritis [Unknown]
